FAERS Safety Report 23687970 (Version 1)
Quarter: 2024Q1

REPORT INFORMATION
  Report Type: Spontaneous
  Country: US (occurrence: US)
  Receive Date: 20240329
  Receipt Date: 20240329
  Transmission Date: 20240410
  Serious: Yes (Other)
  Sender: FDA-Public Use
  Company Number: US-UPSHER-SMITH LABORATORIES, LLC-2024USL00262

PATIENT

DRUGS (2)
  1. VIGADRONE [Suspect]
     Active Substance: VIGABATRIN
     Indication: Partial seizures
     Dosage: 550 MG (11 ML) BY MOUTH TWICE DAILY AS DIRECTED
     Route: 048
     Dates: start: 20230218
  2. VIGADRONE [Suspect]
     Active Substance: VIGABATRIN
     Dosage: DOSE INCREASED
     Route: 048

REACTIONS (1)
  - Seizure [Unknown]

NARRATIVE: CASE EVENT DATE: 20240101
